FAERS Safety Report 20019614 (Version 1)
Quarter: 2021Q4

REPORT INFORMATION
  Report Type: Spontaneous
  Country: US (occurrence: US)
  Receive Date: 20211101
  Receipt Date: 20211101
  Transmission Date: 20220303
  Serious: Yes (Other)
  Sender: FDA-Public Use
  Company Number: US-NOVOPROD-860654

PATIENT
  Age: 68 Year
  Sex: Female

DRUGS (1)
  1. NOVOLOG [Suspect]
     Active Substance: INSULIN ASPART
     Indication: Product used for unknown indication
     Dosage: SLIDING SCALE
     Route: 058
     Dates: start: 2016

REACTIONS (6)
  - Eye haemorrhage [Not Recovered/Not Resolved]
  - Expired product administered [Recovered/Resolved]
  - Pruritus [Unknown]
  - Epistaxis [Not Recovered/Not Resolved]
  - Rash erythematous [Unknown]
  - Headache [Unknown]

NARRATIVE: CASE EVENT DATE: 20191001
